FAERS Safety Report 4848960-9 (Version None)
Quarter: 2005Q4

REPORT INFORMATION
  Report Type: 
  Country: None (occurrence: None)
  Receive Date: 20051122
  Receipt Date: 20041019
  Transmission Date: 20060501
  Serious: Yes (Life-Threatening, Other)
  Sender: FDA-Public Use
  Company Number: 2004-10-0006

PATIENT
  Age: 63 Year
  Sex: Female

DRUGS (1)
  1. PACLITAXEL [Suspect]
     Dosage: 320MG Q3WEEK, INTRAVENOUS
     Route: 042
     Dates: start: 20040831, end: 20040831

REACTIONS (1)
  - HYPERSENSITIVITY [None]
